FAERS Safety Report 7461171-6 (Version None)
Quarter: 2011Q2

REPORT INFORMATION
  Report Type: 
  Country: None (occurrence: None)
  Receive Date: 20110505
  Receipt Date: 20110426
  Transmission Date: 20111010
  Serious: Yes (Hospitalization)
  Sender: FDA-Public Use
  Company Number: US-ASTRAZENECA-2011SE12356

PATIENT
  Age: 61 Year
  Sex: Female
  Weight: 62.6 kg

DRUGS (5)
  1. LORAZEPAM [Concomitant]
     Indication: ANXIETY
     Route: 048
  2. LISINOPRIL AND HYDROCHLOROTHIAZIDE [Concomitant]
  3. SEROQUEL XR [Suspect]
     Indication: DEPRESSION
     Route: 048
  4. SINEQUAN [Concomitant]
     Indication: DEPRESSION
     Route: 048
  5. ATIVAN [Concomitant]

REACTIONS (6)
  - ARTHRITIS [None]
  - DRUG DOSE OMISSION [None]
  - DECREASED APPETITE [None]
  - DEPRESSION [None]
  - CHRONIC OBSTRUCTIVE PULMONARY DISEASE [None]
  - SUICIDAL IDEATION [None]
